FAERS Safety Report 10590287 (Version 4)
Quarter: 2015Q1

REPORT INFORMATION
  Report Type: Report from Study
  Country: IL (occurrence: IL)
  Receive Date: 20141118
  Receipt Date: 20150116
  Transmission Date: 20150720
  Serious: Yes (Death, Other)
  Sender: FDA-Public Use
  Company Number: IL-009507513-1411ISR006766

PATIENT
  Sex: Female

DRUGS (1)
  1. PEMBROLIZUMAB. [Suspect]
     Active Substance: PEMBROLIZUMAB
     Indication: GASTRIC CANCER
     Dosage: FOR 2 DAYS, ONE CYCLE
     Route: 042
     Dates: start: 2014

REACTIONS (4)
  - Death [Fatal]
  - Pulmonary endarterectomy [Fatal]
  - Inappropriate schedule of drug administration [Unknown]
  - Pulmonary embolism [Fatal]

NARRATIVE: CASE EVENT DATE: 2014
